FAERS Safety Report 19212739 (Version 1)
Quarter: 2021Q2

REPORT INFORMATION
  Report Type: Spontaneous
  Country: TR (occurrence: TR)
  Receive Date: 20210504
  Receipt Date: 20210504
  Transmission Date: 20210717
  Serious: Yes (Death, Other)
  Sender: FDA-Public Use
  Company Number: TR-PFIZER INC-2021468464

PATIENT
  Age: 57 Year
  Sex: Male

DRUGS (2)
  1. IMMUNOGLOBULIN HUMAN NORMAL [Suspect]
     Active Substance: HUMAN IMMUNOGLOBULIN G
     Indication: BULBAR PALSY
     Dosage: UNK, 1X/DAY (1 G/KG/DAY)
     Route: 042
  2. METHYLPREDNISOLONE ACETATE. [Suspect]
     Active Substance: METHYLPREDNISOLONE ACETATE
     Indication: BULBAR PALSY
     Dosage: 1.5 MG/KG, 1X/DAY (TOTAL 96 MG/DAY)

REACTIONS (3)
  - Off label use [Unknown]
  - Drug ineffective for unapproved indication [Unknown]
  - Pneumonia aspiration [Fatal]
